FAERS Safety Report 23859797 (Version 1)
Quarter: 2024Q2

REPORT INFORMATION
  Report Type: Spontaneous
  Country: FR (occurrence: FR)
  Receive Date: 20240515
  Receipt Date: 20240515
  Transmission Date: 20240716
  Serious: Yes (Hospitalization, Other)
  Sender: FDA-Public Use
  Company Number: None

PATIENT
  Age: 68 Year
  Sex: Female
  Weight: 65 kg

DRUGS (17)
  1. KEYTRUDA [Suspect]
     Active Substance: PEMBROLIZUMAB
     Indication: Lung adenocarcinoma
     Dosage: C3
     Route: 042
     Dates: start: 20240408, end: 20240408
  2. KEYTRUDA [Suspect]
     Active Substance: PEMBROLIZUMAB
     Dosage: C1
     Route: 042
     Dates: start: 20240226, end: 20240226
  3. KEYTRUDA [Suspect]
     Active Substance: PEMBROLIZUMAB
     Dosage: C2
     Route: 042
     Dates: start: 20240318, end: 20240318
  4. CARBOPLATIN [Suspect]
     Active Substance: CARBOPLATIN
     Indication: Lung adenocarcinoma
     Dosage: C3 (5 AUC) - CREATININE 90 MCMOL/L
     Route: 042
     Dates: start: 20240408, end: 20240408
  5. CARBOPLATIN [Suspect]
     Active Substance: CARBOPLATIN
     Dosage: C2 (5 AUC) - CREATININE 55 MCMOL/L
     Route: 042
     Dates: start: 20240318, end: 20240318
  6. CARBOPLATIN [Suspect]
     Active Substance: CARBOPLATIN
     Dosage: C1 (5 AUC) - CREATININE 55 MCMOL/L
     Route: 042
     Dates: start: 20240226, end: 20240226
  7. PEMETREXED [Suspect]
     Active Substance: PEMETREXED
     Indication: Lung adenocarcinoma
     Dosage: C2
     Route: 042
     Dates: start: 20240318, end: 20240318
  8. PEMETREXED [Suspect]
     Active Substance: PEMETREXED
     Dosage: C3
     Route: 042
     Dates: start: 20240408, end: 20240408
  9. PEMETREXED [Suspect]
     Active Substance: PEMETREXED
     Dosage: C1
     Route: 042
     Dates: start: 20240226, end: 20240226
  10. RACECADOTRIL [Concomitant]
     Active Substance: RACECADOTRIL
     Dosage: UNK
  11. ONDANSETRON [Concomitant]
     Active Substance: ONDANSETRON
     Dosage: UNK
  12. PRIMPERAN [Concomitant]
     Active Substance: METOCLOPRAMIDE HYDROCHLORIDE
     Dosage: UNK
  13. CYANOCOBALAMIN [Concomitant]
     Active Substance: CYANOCOBALAMIN
     Dosage: UNK
  14. FOLIC ACID [Concomitant]
     Active Substance: FOLIC ACID
     Dosage: UNK
  15. PREDNISONE [Concomitant]
     Active Substance: PREDNISONE
  16. EMEND [Concomitant]
     Active Substance: APREPITANT
     Dosage: UNK
  17. DOLIPRANE [Concomitant]
     Active Substance: ACETAMINOPHEN
     Dosage: UNK

REACTIONS (3)
  - Hepatic cytolysis [Recovering/Resolving]
  - Eosinophilia [Recovered/Resolved]
  - Rash maculo-papular [Recovered/Resolved]

NARRATIVE: CASE EVENT DATE: 20240409
